FAERS Safety Report 11455522 (Version 1)
Quarter: 2015Q3

REPORT INFORMATION
  Report Type: Spontaneous
  Country: US (occurrence: US)
  Receive Date: 20150903
  Receipt Date: 20150903
  Transmission Date: 20151125
  Serious: No
  Sender: FDA-Public Use
  Company Number: US-PFIZER INC-2015280003

PATIENT
  Age: 66 Year
  Sex: Female
  Weight: 57 kg

DRUGS (2)
  1. INSPRA [Suspect]
     Active Substance: EPLERENONE
     Dosage: 25 MG, 2X/DAY
     Dates: start: 2015, end: 2015
  2. INSPRA [Suspect]
     Active Substance: EPLERENONE
     Indication: CHORIORETINOPATHY
     Dosage: 25 MG, 1X/DAY
     Dates: start: 2015, end: 2015

REACTIONS (3)
  - Therapeutic response unexpected [Unknown]
  - Pre-existing condition improved [Unknown]
  - Product use issue [Unknown]

NARRATIVE: CASE EVENT DATE: 2015
